FAERS Safety Report 4551922-2 (Version None)
Quarter: 2005Q1

REPORT INFORMATION
  Report Type: 
  Country: None (occurrence: None)
  Receive Date: 20050110
  Receipt Date: 20050104
  Transmission Date: 20050727
  Serious: Yes (Hospitalization)
  Sender: FDA-Public Use
  Company Number: 05-01-0017

PATIENT
  Age: 55 Year
  Sex: Male

DRUGS (1)
  1. CLOZAPINE [Suspect]
     Indication: SCHIZOPHRENIA
     Dosage: 400-175MG QD

REACTIONS (10)
  - CATATONIA [None]
  - COMMUNICATION DISORDER [None]
  - DRUG WITHDRAWAL SYNDROME [None]
  - FLUSHING [None]
  - GENERAL PHYSICAL HEALTH DETERIORATION [None]
  - HALLUCINATION, AUDITORY [None]
  - ORAL INTAKE REDUCED [None]
  - SOMNOLENCE [None]
  - TREATMENT NONCOMPLIANCE [None]
  - URINARY RETENTION [None]
